FAERS Safety Report 17674141 (Version 1)
Quarter: 2020Q2

REPORT INFORMATION
  Report Type: Spontaneous
  Country: FR (occurrence: FR)
  Receive Date: 20200416
  Receipt Date: 20200416
  Transmission Date: 20200714
  Serious: Yes (Other)
  Sender: FDA-Public Use
  Company Number: FR-ABBVIE-20K-056-3365715-00

PATIENT
  Age: 60 Year
  Sex: Female
  Weight: 63 kg

DRUGS (16)
  1. HUMIRA [Suspect]
     Active Substance: ADALIMUMAB
     Indication: PSORIASIS
     Route: 058
     Dates: start: 20170901, end: 20170901
  2. FURUSEMIDE [Concomitant]
     Active Substance: FUROSEMIDE
     Indication: ACUTE CORONARY SYNDROME
     Dates: start: 201701
  3. DUOPLAVIN [Concomitant]
     Active Substance: ASPIRIN\CLOPIDOGREL
     Indication: ACUTE CORONARY SYNDROME
     Dates: start: 201701
  4. HUMIRA [Suspect]
     Active Substance: ADALIMUMAB
     Route: 058
     Dates: end: 20180406
  5. LEVOTHYROX [Concomitant]
     Active Substance: LEVOTHYROXINE
     Indication: ACUTE CORONARY SYNDROME
     Dates: start: 201701
  6. XANAX [Concomitant]
     Active Substance: ALPRAZOLAM
     Indication: ACUTE CORONARY SYNDROME
     Dates: start: 201701
  7. METFORMINE [Concomitant]
     Active Substance: METFORMIN HYDROCHLORIDE
     Indication: ACUTE CORONARY SYNDROME
  8. METOJECT [Suspect]
     Active Substance: METHOTREXATE SODIUM
     Indication: PSORIASIS
     Route: 058
     Dates: start: 20170515, end: 20170812
  9. RAMIPRIL. [Concomitant]
     Active Substance: RAMIPRIL
     Indication: ACUTE CORONARY SYNDROME
     Dates: start: 201701
  10. VICTOZA [Concomitant]
     Active Substance: LIRAGLUTIDE
     Indication: ACUTE CORONARY SYNDROME
     Dates: start: 201701
  11. NEBIVOLOL. [Concomitant]
     Active Substance: NEBIVOLOL
     Indication: ACUTE CORONARY SYNDROME
     Dates: start: 201701
  12. COSENTYX [Suspect]
     Active Substance: SECUKINUMAB
     Indication: PSORIASIS
     Route: 058
     Dates: start: 2017
  13. COSENTYX [Suspect]
     Active Substance: SECUKINUMAB
     Route: 058
     Dates: start: 20190612, end: 201910
  14. ATORVASTATINE [Concomitant]
     Active Substance: ATORVASTATIN
     Indication: ACUTE CORONARY SYNDROME
     Dates: start: 201701
  15. STELARA [Suspect]
     Active Substance: USTEKINUMAB
     Indication: PSORIASIS
     Route: 058
     Dates: start: 20180715, end: 20190612
  16. METHOTREXATE. [Concomitant]
     Active Substance: METHOTREXATE
     Indication: PRODUCT USED FOR UNKNOWN INDICATION

REACTIONS (3)
  - Clear cell endometrial carcinoma [Unknown]
  - Metrorrhagia [Unknown]
  - Diarrhoea [Unknown]
